FAERS Safety Report 20899934 (Version 1)
Quarter: 2022Q2

REPORT INFORMATION
  Report Type: Spontaneous
  Country: CH (occurrence: CH)
  Receive Date: 20220601
  Receipt Date: 20220601
  Transmission Date: 20220720
  Serious: No
  Sender: FDA-Public Use
  Company Number: CH-ALKEM LABORATORIES LIMITED-CH-ALKEM-2022-01114

PATIENT
  Age: 53 Year
  Sex: Female

DRUGS (1)
  1. NIMODIPINE [Suspect]
     Active Substance: NIMODIPINE
     Indication: Reversible cerebral vasoconstriction syndrome
     Dosage: UNK
     Route: 042

REACTIONS (1)
  - Drug ineffective [Unknown]
